FAERS Safety Report 7754531-7 (Version None)
Quarter: 2011Q3

REPORT INFORMATION
  Report Type: 
  Country: None (occurrence: None)
  Receive Date: 20110915
  Receipt Date: 20110216
  Transmission Date: 20111222
  Serious: No
  Sender: FDA-Public Use
  Company Number: US-BAYER-2011-017331

PATIENT
  Age: 38 Year
  Sex: Female
  Weight: 52.154 kg

DRUGS (2)
  1. ULTRAVIST 150 [Suspect]
     Indication: COMPUTERISED TOMOGRAM
     Dosage: 100 ML, UNK
     Dates: start: 20110216
  2. NUVARING [Concomitant]

REACTIONS (4)
  - SNEEZING [None]
  - URTICARIA [None]
  - SWOLLEN TONGUE [None]
  - PARAESTHESIA ORAL [None]
